FAERS Safety Report 26009345 (Version 2)
Quarter: 2025Q4

REPORT INFORMATION
  Report Type: Report from Study
  Country: JP (occurrence: JP)
  Receive Date: 20251107
  Receipt Date: 20251114
  Transmission Date: 20260117
  Serious: Yes (Hospitalization)
  Sender: BOEHRINGER INGELHEIM
  Company Number: JP-NBI-BJ202404232

PATIENT
  Age: 89 Year
  Sex: Female
  Weight: 42 kg

DRUGS (14)
  1. SPEVIGO [Suspect]
     Active Substance: SPESOLIMAB-SBZO
     Indication: Pustular psoriasis
     Route: 042
     Dates: start: 20240214, end: 20240214
  2. TREMFYA [Suspect]
     Active Substance: GUSELKUMAB
     Indication: Pustular psoriasis
  3. ETRETINATE [Concomitant]
     Active Substance: ETRETINATE
     Indication: Pustular psoriasis
     Dosage: ORAL ADMINISTRATION OF 10 (UNIT NOT REPORTED) EVERY OTHER DAY
     Dates: start: 20220928
  4. ETRETINATE [Concomitant]
     Active Substance: ETRETINATE
     Dosage: ORAL ADMINISTRATION OF 10 (UNIT NOT REPORTED) TWO DAYS A WEEK
  5. ETRETINATE [Concomitant]
     Active Substance: ETRETINATE
     Dosage: 10 (UNIT NOT REPORTED)
  6. ETRETINATE [Concomitant]
     Active Substance: ETRETINATE
     Dosage: 20 (UNIT NOT REPORTED)
  7. LANSOPRAZOLE [Concomitant]
     Active Substance: LANSOPRAZOLE
     Indication: Prophylaxis against gastrointestinal ulcer
     Dates: start: 20240322, end: 20240328
  8. BENIDIPINE HYDROCHLORIDE [Concomitant]
     Active Substance: BENIDIPINE HYDROCHLORIDE
  9. OLMESARTAN MEDOXOMIL [Concomitant]
     Active Substance: OLMESARTAN MEDOXOMIL
  10. BIFIDOBACTERIUM LONGUM [Concomitant]
     Active Substance: BIFIDOBACTERIUM LONGUM
  11. MAGNESIUM OXIDE [Concomitant]
     Active Substance: MAGNESIUM OXIDE
  12. PREDNISOLONE [Concomitant]
     Active Substance: PREDNISOLONE
  13. PREDNISOLONE [Concomitant]
     Active Substance: PREDNISOLONE
  14. PREDNISOLONE [Concomitant]
     Active Substance: PREDNISOLONE

REACTIONS (1)
  - Eosinophil count increased [Not Recovered/Not Resolved]

NARRATIVE: CASE EVENT DATE: 20240216
